FAERS Safety Report 8790844 (Version 1)
Quarter: 2012Q4

REPORT INFORMATION
  Report Type: Spontaneous
  Country: IT (occurrence: None)
  Receive Date: 20120910
  Receipt Date: 20120910
  Transmission Date: 20130627
  Serious: Yes (Other)
  Sender: FDA-Public Use
  Company Number: DSA_59342_2012

PATIENT

DRUGS (4)
  1. FLUOROURACIL (FLUOROURACIL) [Suspect]
     Indication: OESOPHAGEAL CARCINOMA
     Dosage: (1000 mg/m2, every cycle)
  2. THERAPEUTIC RADIOPHARMACEUTICALS (THERAPEUTIC RADIOPHARMACEUTICALS) [Suspect]
     Dosage: (DF)
  3. CISPLATIN [Concomitant]
  4. CARBOPLATIN [Concomitant]

REACTIONS (2)
  - Oesophagitis [None]
  - Dysphagia [None]
